FAERS Safety Report 18880064 (Version 1)
Quarter: 2021Q1

REPORT INFORMATION
  Report Type: Spontaneous
  Country: US (occurrence: US)
  Receive Date: 20210211
  Receipt Date: 20210211
  Transmission Date: 20210420
  Serious: No
  Sender: FDA-Public Use
  Company Number: US-NEUROCRINE BIOSCIENCES INC.-2021NBI00404

PATIENT
  Age: 64 Year
  Sex: Male
  Weight: 115 kg

DRUGS (4)
  1. METHYL FOLATE [Suspect]
     Active Substance: LEVOMEFOLATE CALCIUM
     Dates: start: 202012
  2. PREVAGEN [Suspect]
     Active Substance: DIETARY SUPPLEMENT
     Indication: MEMORY IMPAIRMENT
     Dates: start: 202011
  3. NIFEDIPINE. [Concomitant]
     Active Substance: NIFEDIPINE
     Indication: HYPERTENSION
  4. INGREZZA [Suspect]
     Active Substance: VALBENAZINE
     Indication: TARDIVE DYSKINESIA
     Route: 048
     Dates: start: 202011

REACTIONS (4)
  - Dizziness [Unknown]
  - Fall [Unknown]
  - Memory impairment [Unknown]
  - Dysstasia [Unknown]

NARRATIVE: CASE EVENT DATE: 202011
